FAERS Safety Report 4530255-4 (Version None)
Quarter: 2004Q4

REPORT INFORMATION
  Report Type: 
  Country: None (occurrence: None)
  Receive Date: 20041215
  Receipt Date: 20041206
  Transmission Date: 20050328
  Serious: Yes (Life-Threatening, Hospitalization)
  Sender: FDA-Public Use
  Company Number: 2004105764

PATIENT
  Age: 57 Year
  Sex: Female

DRUGS (2)
  1. AMLODIPINE [Suspect]
     Indication: HYPERTENSION
     Dosage: 5 MG (2.5 MG, 2 IN 1 D), ORAL
     Route: 048
     Dates: start: 20040526, end: 20040701
  2. VALSARTAN (VALSARTAN) [Suspect]
     Indication: HYPERTENSION
     Dosage: 160 MG (80 MG, 2 IN 1 D), ORAL
     Route: 048
     Dates: start: 20031203, end: 20040701

REACTIONS (6)
  - AGRANULOCYTOSIS [None]
  - ANTIBODY TEST POSITIVE [None]
  - INFECTION [None]
  - NEUTROPENIA [None]
  - PHARYNGOLARYNGEAL PAIN [None]
  - WHITE BLOOD CELL COUNT DECREASED [None]
